FAERS Safety Report 11585402 (Version 1)
Quarter: 2015Q4

REPORT INFORMATION
  Report Type: Spontaneous
  Country: US (occurrence: US)
  Receive Date: 20151001
  Receipt Date: 20151001
  Transmission Date: 20160304
  Serious: Yes (Life-Threatening, Hospitalization)
  Sender: FDA-Public Use
  Company Number: US-BANPHARM-20154253

PATIENT
  Age: 16 Year
  Sex: Male

DRUGS (3)
  1. ONDANSETRON [Concomitant]
     Active Substance: ONDANSETRON
  2. IBUPROFEN UNKNOWN PRODUCT [Suspect]
     Active Substance: IBUPROFEN
     Indication: INTENTIONAL OVERDOSE
     Dosage: DF APPROX. 1000 TABLETS, EACH 200MG,
     Route: 048
  3. CAFFEINE. [Concomitant]
     Active Substance: CAFFEINE

REACTIONS (4)
  - Hypotension [Recovered/Resolved]
  - Metabolic acidosis [Recovered/Resolved]
  - Mental status changes [Recovered/Resolved]
  - Intentional overdose [Recovered/Resolved]
